FAERS Safety Report 6202482-1 (Version None)
Quarter: 2009Q2

REPORT INFORMATION
  Report Type: 
  Country: None (occurrence: None)
  Receive Date: 20090526
  Receipt Date: 20090515
  Transmission Date: 20091009
  Serious: Yes (Hospitalization, Other)
  Sender: FDA-Public Use
  Company Number: PL-WYE-H09400009

PATIENT
  Sex: Female
  Weight: 71 kg

DRUGS (9)
  1. BEVACIZUMAB [Suspect]
     Indication: RENAL CELL CARCINOMA
     Route: 042
     Dates: start: 20090330
  2. BISOPROLOL [Concomitant]
  3. TORSEMIDE [Concomitant]
  4. GLYCERYL TRINITRATE [Concomitant]
  5. OMEPRAZOLE [Concomitant]
  6. ALLOPURINOL [Concomitant]
  7. VERAPAMIL [Concomitant]
  8. INTERFERON ALFA [Suspect]
     Indication: RENAL CELL CARCINOMA
     Dosage: 9 MU THREE TIMES WEEKLY
     Route: 058
     Dates: start: 20090330
  9. ACETYLSALICYLIC ACID [Concomitant]

REACTIONS (2)
  - HEADACHE [None]
  - VERTIGO [None]
